FAERS Safety Report 6893616-4 (Version None)
Quarter: 2010Q3

REPORT INFORMATION
  Report Type: 
  Country: None (occurrence: None)
  Receive Date: 20100731
  Receipt Date: 20091028
  Transmission Date: 20110219
  Serious: No
  Sender: FDA-Public Use
  Company Number: US-PFIZER INC-2009262708

PATIENT
  Sex: Male
  Weight: 80.726 kg

DRUGS (2)
  1. LIPITOR [Suspect]
     Indication: HYPERLIPIDAEMIA
     Dosage: 80 MG, 1X/DAY
     Route: 048
     Dates: start: 20051011, end: 20090820
  2. DANTRIUM [Interacting]
     Indication: CAROTID ARTERY OCCLUSION
     Dosage: 25 MG, 3X/DAY
     Route: 048
     Dates: start: 20051011, end: 20090820

REACTIONS (2)
  - DRUG INTERACTION [None]
  - LIVER FUNCTION TEST ABNORMAL [None]
